FAERS Safety Report 11122529 (Version 1)
Quarter: 2015Q2

REPORT INFORMATION
  Report Type: Spontaneous
  Country: IT (occurrence: IT)
  Receive Date: 20150519
  Receipt Date: 20150519
  Transmission Date: 20150821
  Serious: Yes (Death)
  Sender: FDA-Public Use
  Company Number: IT-BAYER-2015-243959

PATIENT
  Age: 67 Year
  Sex: Female

DRUGS (13)
  1. CIPROXIN [Concomitant]
     Active Substance: CIPROFLOXACIN
     Dosage: 400 MG, BID
     Route: 042
  2. DOXAZOSIN [Concomitant]
     Active Substance: DOXAZOSIN\DOXAZOSIN MESYLATE
     Dosage: DAILY DOSE 4 MG
  3. CIPROXIN [Concomitant]
     Active Substance: CIPROFLOXACIN
     Indication: INJECTION SITE PRURITUS
     Dosage: 500 MG, BID
     Route: 048
     Dates: start: 20150505, end: 20150506
  4. ACETYLSALICYLIC ACID({=100 MG) [Concomitant]
     Active Substance: ASPIRIN
     Dosage: DAILY DOSE 100 MG
  5. EUTIROX [Concomitant]
     Active Substance: LEVOTHYROXINE SODIUM
     Dosage: 100 MG, QOD
  6. EUTIROX [Concomitant]
     Active Substance: LEVOTHYROXINE SODIUM
     Dosage: 75 MG, QOD
  7. FLUIMUCIL [Concomitant]
     Active Substance: ACETYLCYSTEINE
  8. LUVION [Concomitant]
     Active Substance: CANRENONE
     Dosage: DAILY DOSE 25 MG
  9. ULTRAVIST [Suspect]
     Active Substance: IOPROMIDE
     Dosage: 1 DF, ONCE
     Route: 042
     Dates: start: 20150508, end: 20150508
  10. NEBIVOLOL [Concomitant]
     Active Substance: NEBIVOLOL
     Dosage: DAILY DOSE 5 MG
  11. RAMIPRIL [RAMIPRIL] [Concomitant]
     Dosage: DAILY DOSE 10 MG
  12. COLECALCIFEROL [Concomitant]
     Active Substance: CHOLECALCIFEROL
     Dosage: 9 GTT, QD
  13. UNASYN [Concomitant]
     Active Substance: AMPICILLIN SODIUM\SULBACTAM SODIUM
     Dosage: 3 G, TID

REACTIONS (2)
  - Loss of consciousness [Fatal]
  - Cardio-respiratory arrest [Fatal]

NARRATIVE: CASE EVENT DATE: 20150508
